FAERS Safety Report 6311114-3 (Version None)
Quarter: 2009Q3

REPORT INFORMATION
  Report Type: 
  Country: None (occurrence: None)
  Receive Date: 20090817
  Receipt Date: 20090805
  Transmission Date: 20100115
  Serious: Yes (Hospitalization)
  Sender: FDA-Public Use
  Company Number: IE-BAYER-200912721BNE

PATIENT
  Sex: Female

DRUGS (1)
  1. MIRENA [Suspect]
     Indication: CONTRACEPTION
     Route: 015
     Dates: start: 20070202

REACTIONS (7)
  - ABDOMINAL ADHESIONS [None]
  - HYPOTENSION [None]
  - IUCD COMPLICATION [None]
  - IUD MIGRATION [None]
  - MENORRHAGIA [None]
  - PRESYNCOPE [None]
  - UTERINE RUPTURE [None]
